FAERS Safety Report 5685374-6 (Version None)
Quarter: 2008Q1

REPORT INFORMATION
  Report Type: 
  Country: None (occurrence: None)
  Receive Date: 20080328
  Receipt Date: 20080320
  Transmission Date: 20080703
  Serious: Yes (Other)
  Sender: FDA-Public Use
  Company Number: US-PFIZER INC-2008025397

PATIENT
  Sex: Male
  Weight: 81.6 kg

DRUGS (4)
  1. LIPITOR [Suspect]
     Indication: BLOOD CHOLESTEROL INCREASED
  2. PLAVIX [Concomitant]
  3. TOPROL [Concomitant]
     Indication: HYPERTENSION
  4. ACETYLSALICYLIC ACID SRT [Concomitant]

REACTIONS (3)
  - ARTERIAL OCCLUSIVE DISEASE [None]
  - HIGH DENSITY LIPOPROTEIN DECREASED [None]
  - STENT PLACEMENT [None]
